FAERS Safety Report 5135205-8 (Version None)
Quarter: 2006Q4

REPORT INFORMATION
  Report Type: 
  Country: None (occurrence: None)
  Receive Date: 20061026
  Receipt Date: 20061016
  Transmission Date: 20070319
  Serious: Yes (Death)
  Sender: FDA-Public Use
  Company Number: US-JNJFOC-20061004710

PATIENT
  Age: 47 Year
  Sex: Female

DRUGS (2)
  1. FENTANYL [Suspect]
     Indication: DRUG USE FOR UNKNOWN INDICATION
     Route: 065
  2. ACETAMINOPHEN [Suspect]
     Indication: DRUG USE FOR UNKNOWN INDICATION
     Route: 065

REACTIONS (7)
  - COMA [None]
  - DEATH [None]
  - ENCEPHALOPATHY [None]
  - HEPATIC FAILURE [None]
  - INTENTIONAL DRUG MISUSE [None]
  - RENAL FAILURE [None]
  - RESPIRATORY DEPRESSION [None]
